FAERS Safety Report 8406492-5 (Version None)
Quarter: 2012Q2

REPORT INFORMATION
  Report Type: 
  Country: None (occurrence: None)
  Receive Date: 20120604
  Receipt Date: 20120529
  Transmission Date: 20120825
  Serious: Yes (Hospitalization)
  Sender: FDA-Public Use
  Company Number: US-BAYER-2012-044362

PATIENT
  Age: 29 Year
  Sex: Female

DRUGS (2)
  1. ORAL CONTRACEPTIVE NOS [Concomitant]
  2. YAZ [Suspect]
     Dosage: UNK
     Dates: start: 20070401, end: 20070602

REACTIONS (4)
  - VENOUS THROMBOSIS LIMB [None]
  - PAIN [None]
  - INJURY [None]
  - PULMONARY EMBOLISM [None]
